FAERS Safety Report 4753214-5 (Version None)
Quarter: 2005Q3

REPORT INFORMATION
  Report Type: 
  Country: None (occurrence: None)
  Receive Date: 20050824
  Receipt Date: 20050817
  Transmission Date: 20060218
  Serious: Yes (Other)
  Sender: FDA-Public Use
  Company Number: 216445

PATIENT
  Sex: Male
  Weight: 129.3 kg

DRUGS (1)
  1. RAPTIVA [Suspect]
     Indication: PSORIASIS
     Dosage: SEE IMAGE
     Dates: start: 20050101

REACTIONS (2)
  - THERAPY NON-RESPONDER [None]
  - WEIGHT INCREASED [None]
